FAERS Safety Report 13539270 (Version 1)
Quarter: 2017Q2

REPORT INFORMATION
  Report Type: Spontaneous
  Country: US (occurrence: US)
  Receive Date: 20170512
  Receipt Date: 20170512
  Transmission Date: 20170830
  Serious: No
  Sender: FDA-Public Use
  Company Number: US-LEO PHARMA-301723

PATIENT
  Age: 77 Year
  Sex: Male

DRUGS (1)
  1. PICATO [Suspect]
     Active Substance: INGENOL MEBUTATE
     Indication: ACTINIC KERATOSIS
     Route: 061
     Dates: start: 20170501, end: 20170503

REACTIONS (2)
  - Application site pruritus [Not Recovered/Not Resolved]
  - Eyelid oedema [Not Recovered/Not Resolved]

NARRATIVE: CASE EVENT DATE: 20170504
